FAERS Safety Report 18044938 (Version 1)
Quarter: 2020Q3

REPORT INFORMATION
  Report Type: Spontaneous
  Country: US (occurrence: US)
  Receive Date: 20200720
  Receipt Date: 20200720
  Transmission Date: 20201103
  Serious: Yes (Death, Other)
  Sender: FDA-Public Use
  Company Number: US-BRISTOL-MYERS SQUIBB COMPANY-BMS-2020-055405

PATIENT
  Age: 80 Year
  Sex: Female

DRUGS (1)
  1. COUMADIN [Suspect]
     Active Substance: WARFARIN SODIUM
     Indication: CARDIAC DISORDER
     Dosage: UNK, Q2WK
     Route: 065

REACTIONS (4)
  - Gastric disorder [Unknown]
  - Road traffic accident [Fatal]
  - Cardiac disorder [Unknown]
  - Cerebral haemorrhage [Fatal]

NARRATIVE: CASE EVENT DATE: 2018
